FAERS Safety Report 18063017 (Version 10)
Quarter: 2025Q3

REPORT INFORMATION
  Report Type: Spontaneous
  Country: IN (occurrence: IN)
  Receive Date: 20200723
  Receipt Date: 20250819
  Transmission Date: 20251020
  Serious: Yes (Other)
  Sender: PFIZER
  Company Number: IN-PFIZER INC-2019139015

PATIENT
  Age: 29 Year
  Sex: Female
  Weight: 58.3 kg

DRUGS (19)
  1. PALBOCICLIB [Suspect]
     Active Substance: PALBOCICLIB
     Indication: Breast cancer metastatic
     Route: 048
     Dates: start: 20181215
  2. PALBOCICLIB [Suspect]
     Active Substance: PALBOCICLIB
     Route: 048
  3. PALBOCICLIB [Suspect]
     Active Substance: PALBOCICLIB
     Route: 048
  4. PALBOCICLIB [Suspect]
     Active Substance: PALBOCICLIB
     Route: 048
  5. COBADEX [DIMETICONE;HYDROCORTISONE] [Concomitant]
  6. DUPHALAC [Concomitant]
     Active Substance: LACTULOSE
     Dosage: 30 ML, 1X/DAY (HS (AT BEDTIME) X 3 DAYS)
  7. LETROZOLE [Concomitant]
     Active Substance: LETROZOLE
     Dosage: 2.5 MG, 1X/DAY
     Dates: start: 2018
  8. LETROZOLE [Concomitant]
     Active Substance: LETROZOLE
     Dates: start: 201812
  9. LETROZOLE [Concomitant]
     Active Substance: LETROZOLE
     Dosage: 2.5 MG, 1X/DAY (FOR 3 MONTHS)
  10. LEUPROLIDE ACETATE [Concomitant]
     Active Substance: LEUPROLIDE ACETATE
     Dates: start: 201812
  11. LEUPROLIDE ACETATE [Concomitant]
     Active Substance: LEUPROLIDE ACETATE
     Dosage: 11.25 MG, MONTHLY
     Dates: start: 201901
  12. LEUPROLIDE ACETATE [Concomitant]
     Active Substance: LEUPROLIDE ACETATE
     Dosage: 11.25 MG, MONTHLY
     Route: 030
     Dates: start: 20200216
  13. LEUPROLIDE ACETATE [Concomitant]
     Active Substance: LEUPROLIDE ACETATE
     Route: 030
  14. PREGABALIN [Concomitant]
     Active Substance: PREGABALIN
  15. URSOMAX [Concomitant]
     Dosage: 300 MG, 2X/DAY
  16. ZOLADEX [Concomitant]
     Active Substance: GOSERELIN ACETATE
  17. ZOLEDRONIC ACID [Concomitant]
     Active Substance: ZOLEDRONIC ACID
     Route: 042
     Dates: start: 20190115
  18. ZOLEDRONIC ACID [Concomitant]
     Active Substance: ZOLEDRONIC ACID
     Dates: start: 20200416
  19. ZOLEDRONIC ACID [Concomitant]
     Active Substance: ZOLEDRONIC ACID
     Route: 042

REACTIONS (20)
  - Neutropenia [Unknown]
  - Haemoglobin decreased [Unknown]
  - Metastases to bone [Unknown]
  - Metastases to lung [Unknown]
  - Oophorectomy [Unknown]
  - Platelet count decreased [Unknown]
  - Blood disorder [Unknown]
  - Alopecia [Unknown]
  - Rash [Unknown]
  - Skin exfoliation [Unknown]
  - White blood cell count decreased [Unknown]
  - Vitamin D increased [Unknown]
  - Oestradiol decreased [Unknown]
  - Blood albumin decreased [Unknown]
  - Vitamin D decreased [Unknown]
  - Hepatic enzyme increased [Not Recovered/Not Resolved]
  - Dyspnoea exertional [Unknown]
  - Red blood cell sedimentation rate increased [Unknown]
  - Vitamin B12 increased [Unknown]
  - Vulvovaginal dryness [Unknown]

NARRATIVE: CASE EVENT DATE: 20200619
